FAERS Safety Report 12599250 (Version 1)
Quarter: 2016Q3

REPORT INFORMATION
  Report Type: Spontaneous
  Country: US (occurrence: US)
  Receive Date: 20160727
  Receipt Date: 20160727
  Transmission Date: 20161109
  Serious: No
  Sender: FDA-Public Use
  Company Number: US-VIFOR (INTERNATIONAL) INC.-VIT-2016-03435

PATIENT

DRUGS (1)
  1. VELPHORO [Suspect]
     Active Substance: FERRIC OXYHYDROXIDE
     Indication: HYPERPHOSPHATAEMIA
     Dosage: 3 X 500 MG TABLETS THREE TIMES A DAY WITH MEALS AND 2 X 500 MG TABLETS 2 TIMES A DAY WITH SNACKS
     Route: 048

REACTIONS (2)
  - Overdose [Unknown]
  - Diarrhoea [Unknown]
